FAERS Safety Report 9045479 (Version 1)
Quarter: 2013Q1

REPORT INFORMATION
  Report Type: Report from Study
  Country: US (occurrence: US)
  Receive Date: 20130131
  Receipt Date: 20130131
  Transmission Date: 20140127
  Serious: No
  Sender: FDA-Public Use
  Company Number: US-ABBOTT-12P-163-0995284-00

PATIENT
  Age: 62 Year
  Sex: Female

DRUGS (5)
  1. HUMIRA [Suspect]
     Indication: PSORIASIS
     Dates: start: 20120804
  2. DIOVAN [Concomitant]
     Indication: HYPERTENSION
     Dosage: 320 MG DAILY
     Route: 048
  3. MULTIVITAMIN [Concomitant]
     Indication: SUPPLEMENTATION THERAPY
  4. GARLIC [Concomitant]
     Indication: SUPPLEMENTATION THERAPY
  5. CALCIUM [Concomitant]
     Indication: SUPPLEMENTATION THERAPY

REACTIONS (1)
  - Nail disorder [Not Recovered/Not Resolved]
